FAERS Safety Report 6607766-0 (Version None)
Quarter: 2010Q1

REPORT INFORMATION
  Report Type: 
  Country: None (occurrence: None)
  Receive Date: 20100301
  Receipt Date: 20100115
  Transmission Date: 20100710
  Serious: Yes (Hospitalization, Other)
  Sender: FDA-Public Use
  Company Number: FR-JNJFOC-20100101308

PATIENT
  Age: 86 Year
  Sex: Male

DRUGS (3)
  1. TAVANIC [Suspect]
     Indication: LUNG DISORDER
     Route: 048
     Dates: start: 20091122, end: 20091125
  2. DAFALGAN [Suspect]
     Indication: LUNG DISORDER
     Route: 065
     Dates: start: 20091122
  3. VENTOLIN [Suspect]
     Indication: LUNG DISORDER
     Route: 065
     Dates: start: 20091122

REACTIONS (4)
  - DOCUMENTED HYPERSENSITIVITY TO ADMINISTERED DRUG [None]
  - OEDEMA PERIPHERAL [None]
  - PRURITUS [None]
  - RASH MACULO-PAPULAR [None]
